FAERS Safety Report 8513764-2 (Version None)
Quarter: 2012Q3

REPORT INFORMATION
  Report Type: 
  Country: None (occurrence: None)
  Receive Date: 20120717
  Receipt Date: 20110907
  Transmission Date: 20120928
  Serious: No
  Sender: FDA-Public Use
  Company Number: US-PFIZER INC-K201101057

PATIENT
  Sex: Female

DRUGS (1)
  1. SEPTRA [Suspect]
     Dosage: UNK
     Route: 048

REACTIONS (1)
  - DRUG HYPERSENSITIVITY [None]
